FAERS Safety Report 10377367 (Version 2)
Quarter: 2014Q3

REPORT INFORMATION
  Report Type: Spontaneous
  Country: JP (occurrence: JP)
  Receive Date: 20140812
  Receipt Date: 20140907
  Transmission Date: 20150326
  Serious: Yes (Death)
  Sender: FDA-Public Use
  Company Number: PHHY2012JP134074

PATIENT
  Age: 82 Year
  Sex: Male

DRUGS (1)
  1. EXJADE [Suspect]
     Active Substance: DEFERASIROX
     Dosage: 500 MG, DAILY

REACTIONS (1)
  - Death [Fatal]

NARRATIVE: CASE EVENT DATE: 201204
